FAERS Safety Report 5789367-X (Version None)
Quarter: 2008Q3

REPORT INFORMATION
  Report Type: 
  Country: None (occurrence: None)
  Receive Date: 20080623
  Receipt Date: 20080610
  Transmission Date: 20090109
  Serious: Yes (Hospitalization)
  Sender: FDA-Public Use
  Company Number: AMAN20080005

PATIENT
  Age: 66 Year
  Sex: Female

DRUGS (19)
  1. AMANTADINE HCL [Suspect]
     Indication: PARKINSON'S DISEASE
     Dosage: 50 MG, 1 TABLET TID, PER ORAL
     Route: 048
     Dates: start: 20070315
  2. CARBIDOPA AND LEVODOPA [Suspect]
     Indication: PARKINSON'S DISEASE
     Dosage: 10 TABLETS DAILY,; 10 TABLETS DAILY, PER ORAL; 8 TABLETS DAILY, PER ORAL
     Route: 048
     Dates: start: 20060608, end: 20060911
  3. CARBIDOPA AND LEVODOPA [Suspect]
     Indication: PARKINSON'S DISEASE
     Dosage: 10 TABLETS DAILY,; 10 TABLETS DAILY, PER ORAL; 8 TABLETS DAILY, PER ORAL
     Route: 048
     Dates: start: 20060912, end: 20070304
  4. CARBIDOPA AND LEVODOPA [Suspect]
     Indication: PARKINSON'S DISEASE
     Dosage: 10 TABLETS DAILY,; 10 TABLETS DAILY, PER ORAL; 8 TABLETS DAILY, PER ORAL
     Route: 048
     Dates: start: 20070305
  5. DROXIDOPA (DOPS) [Suspect]
     Indication: PARKINSON'S DISEASE
     Dosage: SEE IMAGE
     Route: 048
     Dates: start: 20021024, end: 20030620
  6. DROXIDOPA (DOPS) [Suspect]
     Indication: PARKINSON'S DISEASE
     Dosage: SEE IMAGE
     Route: 048
     Dates: start: 20060608, end: 20070304
  7. DROXIDOPA (DOPS) [Suspect]
     Indication: PARKINSON'S DISEASE
     Dosage: SEE IMAGE
     Route: 048
     Dates: start: 20070305, end: 20080402
  8. DROXIDOPA (DOPS) [Suspect]
     Indication: PARKINSON'S DISEASE
     Dosage: SEE IMAGE
     Route: 048
     Dates: start: 20080403, end: 20080405
  9. DROXIDOPA (DOPS) [Suspect]
     Indication: PARKINSON'S DISEASE
     Dosage: SEE IMAGE
     Route: 048
     Dates: start: 20080406
  10. PRAMIPEXOLE DIHYDROCHLORIDE [Suspect]
     Dosage: 1.5 MG, TID
     Dates: start: 20070418
  11. SENNOSIDE A B (PURSENNID) [Suspect]
     Dosage: 36 MG, EVERY EVENING,
  12. ZONISAMIDE [Suspect]
     Dosage: 100 MG, BID, PER ORAL
     Route: 048
     Dates: start: 20070822
  13. YOKU-KAN-SAN [Suspect]
     Indication: ANXIETY DISORDER
     Dosage: 2.5 GM, TID
     Dates: start: 20061114
  14. REQUIP [Suspect]
     Dosage: 0.25 MG, TID, PER ORAL
     Route: 048
     Dates: start: 20071219, end: 20080122
  15. REQUIP [Suspect]
     Indication: PARKINSON'S DISEASE
     Dosage: 0.25 MG, TID, PER ORAL
     Route: 048
     Dates: start: 20071219, end: 20080122
  16. PRAMIPEXOLE DIHYDROCHLORIDE [Suspect]
     Indication: PARKINSON'S DISEASE
     Dosage: 1 MG, TID, PER ORAL; 1.5 MG, TID, PER ORAL
     Route: 048
     Dates: start: 20060801, end: 20070417
  17. PRAMIPEXOLE DIHYDROCHLORIDE [Suspect]
     Indication: PARKINSON'S DISEASE
     Dosage: 1 MG, TID, PER ORAL; 1.5 MG, TID, PER ORAL
     Route: 048
     Dates: start: 20070418
  18. PRAVASTATIN SODIUM (ALSETIN) [Concomitant]
  19. FLAVOXATE HYDROCHLORIDE (BLADDERON) [Concomitant]

REACTIONS (13)
  - ARTHRALGIA [None]
  - CHONDROCALCINOSIS PYROPHOSPHATE [None]
  - DRY SKIN [None]
  - ERYTHROMELALGIA [None]
  - EXCORIATION [None]
  - GAIT DISTURBANCE [None]
  - HYPOAESTHESIA [None]
  - OVERDOSE [None]
  - PAIN IN EXTREMITY [None]
  - PIGMENTATION DISORDER [None]
  - SKIN EXFOLIATION [None]
  - SKIN HYPERTROPHY [None]
  - SKIN WARM [None]
